FAERS Safety Report 8958432 (Version 1)
Quarter: 2012Q4

REPORT INFORMATION
  Report Type: Spontaneous
  Country: US (occurrence: None)
  Receive Date: 20121205
  Receipt Date: 20121205
  Transmission Date: 20130627
  Serious: No
  Sender: FDA-Public Use
  Company Number: None

PATIENT
  Age: 11 Year
  Sex: Male
  Weight: 35.9 kg

DRUGS (1)
  1. DAPSONE 25 MG [Suspect]
     Indication: PNEUMOCYSTIS CARINII PROPHYLAXIS
     Dosage: 75 mg daily po
     Route: 048

REACTIONS (2)
  - Tachycardia [None]
  - Oxygen saturation decreased [None]
